FAERS Safety Report 11983985 (Version 1)
Quarter: 2016Q1

REPORT INFORMATION
  Report Type: Other
  Country: US (occurrence: US)
  Receive Date: 20160201
  Receipt Date: 20160201
  Transmission Date: 20160526
  Serious: Yes (Other)
  Sender: FDA-Public Use
  Company Number: US-GUTHY-RENKER LLC-1047065

PATIENT
  Age: 78 Year

DRUGS (9)
  1. MEANINGFUL BEAUTY CINDY CRAWFORD ANTIOXIDANT SPF 20 UVA/UVB [Suspect]
     Active Substance: AVOBENZONE\OCTINOXATE\OCTISALATE\OXYBENZONE
     Indication: PROPHYLAXIS
     Route: 061
     Dates: start: 20151216, end: 20151222
  2. METFORMIN [Concomitant]
     Active Substance: METFORMIN HYDROCHLORIDE
  3. MEANINGFUL BEAUTY CINDY CRAWFORD ANTIOXIDANT SPF 20 UVA/UVB [Suspect]
     Active Substance: AVOBENZONE\OCTINOXATE\OCTISALATE\OXYBENZONE
     Indication: PHOTOSENSITIVITY REACTION
     Route: 061
     Dates: start: 20151216, end: 20151222
  4. TRIAMTERENE. [Concomitant]
     Active Substance: TRIAMTERENE
  5. LEVOTHYROXIN [Concomitant]
     Active Substance: LEVOTHYROXINE
  6. ALLOPURINAL [Concomitant]
  7. JANUVIA [Concomitant]
     Active Substance: SITAGLIPTIN PHOSPHATE
  8. VITAMIN D [Concomitant]
     Active Substance: CHOLECALCIFEROL
  9. LOSARTAN. [Concomitant]
     Active Substance: LOSARTAN

REACTIONS (3)
  - Hordeolum [Not Recovered/Not Resolved]
  - Eye irritation [None]
  - Eye swelling [None]

NARRATIVE: CASE EVENT DATE: 20151222
